FAERS Safety Report 4349431-9 (Version None)
Quarter: 2004Q2

REPORT INFORMATION
  Report Type: 
  Country: None (occurrence: None)
  Receive Date: 20040428
  Receipt Date: 20040417
  Transmission Date: 20050107
  Serious: Yes (Other)
  Sender: FDA-Public Use
  Company Number: PHHO2004PH05641

PATIENT
  Age: 50 Year
  Sex: Male
  Weight: 50 kg

DRUGS (2)
  1. GLEEVEC [Suspect]
     Indication: CHRONIC MYELOID LEUKAEMIA
     Dosage: 400 MG, QD
     Route: 048
     Dates: start: 20031223, end: 20040109
  2. GLEEVEC [Suspect]
     Route: 048
     Dates: start: 20040402, end: 20040402

REACTIONS (14)
  - ANAEMIA [None]
  - BONE MARROW DEPRESSION [None]
  - HAEMORRHAGE SUBCUTANEOUS [None]
  - HYPERSENSITIVITY [None]
  - LEUKOPENIA [None]
  - NEUTROPENIA [None]
  - ORAL MUCOSAL PETECHIAE [None]
  - PERIORBITAL OEDEMA [None]
  - PURPURA [None]
  - RASH GENERALISED [None]
  - RASH MACULO-PAPULAR [None]
  - SKIN BLEEDING [None]
  - SWELLING FACE [None]
  - THROMBOCYTOPENIA [None]
